FAERS Safety Report 15005584 (Version 1)
Quarter: 2018Q2

REPORT INFORMATION
  Report Type: Spontaneous
  Country: BR (occurrence: BR)
  Receive Date: 20180613
  Receipt Date: 20180613
  Transmission Date: 20180711
  Serious: Yes (Other)
  Sender: FDA-Public Use
  Company Number: BR-PFIZER INC-2018228867

PATIENT
  Age: 59 Year
  Sex: Male

DRUGS (2)
  1. LORAX [Suspect]
     Active Substance: LORAZEPAM
     Indication: INSOMNIA
     Dosage: 1 MG, DAILY (AT NIGHT, EVERY DAY)
  2. ZETRON [Concomitant]
     Indication: DEPRESSION
     Dosage: UNK
     Dates: start: 2016

REACTIONS (2)
  - Sjogren^s syndrome [Not Recovered/Not Resolved]
  - Micturition disorder [Recovered/Resolved]

NARRATIVE: CASE EVENT DATE: 2016
